FAERS Safety Report 19062710 (Version 1)
Quarter: 2021Q1

REPORT INFORMATION
  Report Type: Spontaneous
  Country: US (occurrence: US)
  Receive Date: 20210325
  Receipt Date: 20210325
  Transmission Date: 20210420
  Serious: Yes (Hospitalization)
  Sender: FDA-Public Use
  Company Number: None

PATIENT
  Age: 18 Year
  Sex: Male
  Weight: 58.5 kg

DRUGS (1)
  1. ROBO COUGH [Suspect]
     Active Substance: DEXTROMETHORPHAN HYDROBROMIDE
     Dosage: ?          OTHER FREQUENCY:BY THE BOTTLE;?
     Route: 048

REACTIONS (2)
  - Overdose [None]
  - Drug abuse [None]

NARRATIVE: CASE EVENT DATE: 20210320
